FAERS Safety Report 23057616 (Version 1)
Quarter: 2023Q4

REPORT INFORMATION
  Report Type: Spontaneous
  Country: CA (occurrence: None)
  Receive Date: 20231012
  Receipt Date: 20231012
  Transmission Date: 20240110
  Serious: Yes (Other)
  Sender: FDA-Public Use
  Company Number: CA-ROCHE-3436161

PATIENT
  Age: 81 Year
  Sex: Female

DRUGS (12)
  1. RITUXIMAB [Suspect]
     Active Substance: RITUXIMAB
     Indication: Rheumatoid arthritis
     Route: 042
  2. RITUXIMAB [Suspect]
     Active Substance: RITUXIMAB
     Route: 042
  3. DIAZEPAM [Concomitant]
     Active Substance: DIAZEPAM
  4. FOLIC ACID [Concomitant]
     Active Substance: FOLIC ACID
  5. FOSAMAX [Concomitant]
     Active Substance: ALENDRONATE SODIUM
  6. LORAZEPAM [Concomitant]
     Active Substance: LORAZEPAM
     Route: 065
  7. MELOXICAM [Concomitant]
     Active Substance: MELOXICAM
  8. METHOTREXATE [Concomitant]
     Active Substance: METHOTREXATE
     Route: 048
  9. MIRTAZAPINE [Concomitant]
     Active Substance: MIRTAZAPINE
  10. OMEPRAZOLE [Concomitant]
     Active Substance: OMEPRAZOLE
  11. PROLIA [Concomitant]
     Active Substance: DENOSUMAB
     Route: 058
  12. TYLENOL [Concomitant]
     Active Substance: ACETAMINOPHEN

REACTIONS (4)
  - Osteonecrosis of jaw [Unknown]
  - Purulence [Unknown]
  - Swelling face [Unknown]
  - Tooth infection [Unknown]
